FAERS Safety Report 10413806 (Version 2)
Quarter: 2014Q3

REPORT INFORMATION
  Report Type: Spontaneous
  Country: FR (occurrence: None)
  Receive Date: 20140825
  Receipt Date: 20140904
  Transmission Date: 20150326
  Serious: Yes (Other)
  Sender: FDA-Public Use
  Company Number: ADR-2014-01482

PATIENT
  Age: 60 Year
  Sex: Male

DRUGS (10)
  1. MIMPARA [Suspect]
     Active Substance: CINACALCET HYDROCHLORIDE
  2. LIORESAL [Suspect]
     Active Substance: BACLOFEN
     Indication: MUSCLE SPASTICITY
     Dates: start: 2004
  3. RILMENIDINE [Suspect]
     Active Substance: RILMENIDINE
  4. FUROSEMIDE. [Suspect]
     Active Substance: FUROSEMIDE
  5. ATENOLOL. [Suspect]
     Active Substance: ATENOLOL
  6. COVERSYL [Suspect]
     Active Substance: PERINDOPRIL
  7. NOVONORM [Suspect]
     Active Substance: REPAGLINIDE
  8. ZOCOR [Suspect]
     Active Substance: SIMVASTATIN
  9. KARDEGIC [Suspect]
     Active Substance: ASPIRIN LYSINE
  10. AMLODIPINE [Suspect]
     Active Substance: AMLODIPINE BESYLATE

REACTIONS (3)
  - Encephalopathy [None]
  - Drug level increased [None]
  - Overdose [None]

NARRATIVE: CASE EVENT DATE: 20140305
